FAERS Safety Report 8218849-6 (Version None)
Quarter: 2012Q1

REPORT INFORMATION
  Report Type: 
  Country: None (occurrence: None)
  Receive Date: 20120319
  Receipt Date: 20120314
  Transmission Date: 20120608
  Serious: Yes (Hospitalization)
  Sender: FDA-Public Use
  Company Number: PHHY2012IN022313

PATIENT
  Age: 55 Year
  Sex: Male

DRUGS (3)
  1. ONBREZ [Suspect]
     Indication: CHRONIC OBSTRUCTIVE PULMONARY DISEASE
     Dosage: 150 UG, UNK
     Dates: end: 20120201
  2. ONBREZ [Suspect]
     Dosage: 300 UG, UNK
  3. ONBREZ [Suspect]
     Dosage: 150 UG, UNK

REACTIONS (4)
  - LUNG DISORDER [None]
  - LOSS OF CONSCIOUSNESS [None]
  - DYSPNOEA [None]
  - OEDEMA PERIPHERAL [None]
